FAERS Safety Report 19004901 (Version 7)
Quarter: 2021Q3

REPORT INFORMATION
  Report Type: Report from Study
  Country: AT (occurrence: AT)
  Receive Date: 20210312
  Receipt Date: 20210712
  Transmission Date: 20211014
  Serious: Yes (Death, Hospitalization)
  Sender: FDA-Public Use
  Company Number: AT-ROCHE-2720583

PATIENT
  Age: 65 Year
  Sex: Male
  Weight: 65.8 kg

DRUGS (30)
  1. CABOZANTINIB [Suspect]
     Active Substance: CABOZANTINIB
     Dosage: ON 14/OCT/2020, HE RECEIVED THE MOST RECENT DOSE OF CABOZANTINIB PRIOR TO THE EVENT ONSET AT A DOSE
     Route: 048
     Dates: start: 20201014, end: 20201020
  2. PANTOLOC [Concomitant]
     Active Substance: PANTOPRAZOLE SODIUM
  3. ALLOPURINOL. [Concomitant]
     Active Substance: ALLOPURINOL
  4. CORTISONE [Suspect]
     Active Substance: CORTISONE
     Indication: PRODUCT USED FOR UNKNOWN INDICATION
     Route: 065
  5. LASIX [Concomitant]
     Active Substance: FUROSEMIDE
  6. THYREX [Concomitant]
     Active Substance: LEVOTHYROXINE SODIUM
  7. OLEOVIT [RETINOL] [Concomitant]
  8. KALIORAL (AUSTRIA) [Concomitant]
  9. ATEZOLIZUMAB. [Suspect]
     Active Substance: ATEZOLIZUMAB
     Indication: HEPATOCELLULAR CARCINOMA
     Dosage: ON 14/OCT/2020, THE PATIENT RECEIVED THE MOST RECENT DOSE OF ATEZOLIZUMAB PRIOR TO THE EVENT ONSET.
     Route: 042
     Dates: start: 20200720, end: 20210105
  10. EPLERENONE. [Concomitant]
     Active Substance: EPLERENONE
  11. LAEVOLAC [Concomitant]
     Active Substance: LACTULOSE
  12. INSPRA [Concomitant]
     Active Substance: EPLERENONE
  13. TEMESTA [Concomitant]
  14. MAGNESIUM VERLA [Concomitant]
     Active Substance: MAGNESIUM
  15. EUTHYROX [Concomitant]
     Active Substance: LEVOTHYROXINE SODIUM
  16. CABOZANTINIB [Suspect]
     Active Substance: CABOZANTINIB
     Indication: HEPATOCELLULAR CARCINOMA
     Dosage: ON 20/OCT/2020, HE RECEIVED THE MOST RECENT CABOZANTINIB DOSE,?ON 07/AUG/2020 CABOZANTINIB WAS INTER
     Route: 048
     Dates: start: 20200720
  17. DILATREND [Concomitant]
     Active Substance: CARVEDILOL
  18. TRAJENTA [Concomitant]
     Active Substance: LINAGLIPTIN
  19. NOVALGIN (AUSTRIA) [Concomitant]
  20. ATEZOLIZUMAB. [Suspect]
     Active Substance: ATEZOLIZUMAB
     Route: 041
     Dates: start: 20201125
  21. INHIXA [Concomitant]
     Active Substance: ENOXAPARIN SODIUM
  22. ISOPHANE INSULIN [Concomitant]
     Active Substance: INSULIN NOS
  23. SIMVASTATIN. [Concomitant]
     Active Substance: SIMVASTATIN
  24. THROMBO ASS [Concomitant]
     Active Substance: ASPIRIN
  25. NORVASC [Concomitant]
     Active Substance: AMLODIPINE BESYLATE
  26. APREDNISLON [Concomitant]
     Active Substance: PREDNISOLONE
  27. DAFLON [Concomitant]
  28. FOLSAN [Concomitant]
     Active Substance: FOLIC ACID
  29. TAVANIC [Concomitant]
     Active Substance: LEVOFLOXACIN
  30. OPTINEM [Concomitant]
     Active Substance: MEROPENEM

REACTIONS (5)
  - Death [Fatal]
  - Inflammation [Not Recovered/Not Resolved]
  - Inflammation [Recovered/Resolved]
  - Hyperglycaemia [Recovered/Resolved]
  - Haematochezia [Recovered/Resolved]

NARRATIVE: CASE EVENT DATE: 20201104
